FAERS Safety Report 8215063-5 (Version None)
Quarter: 2012Q1

REPORT INFORMATION
  Report Type: 
  Country: None (occurrence: None)
  Receive Date: 20120316
  Receipt Date: 20120312
  Transmission Date: 20120608
  Serious: Yes (Death)
  Sender: FDA-Public Use
  Company Number: US-SANOFI-AVENTIS-2012SA017236

PATIENT
  Sex: Female

DRUGS (2)
  1. PLAVIX [Suspect]
     Route: 065
     Dates: start: 20090301, end: 20110301
  2. ASPIRIN [Suspect]
     Route: 065
     Dates: start: 20090301, end: 20110301

REACTIONS (1)
  - DEATH [None]
